FAERS Safety Report 8862921 (Version 1)
Quarter: 2012Q4

REPORT INFORMATION
  Report Type: 
  Country: IT (occurrence: IT)
  Receive Date: 20121026
  Receipt Date: 20121026
  Transmission Date: 20130627
  Serious: Yes (Other)
  Sender: FDA-Public Use
  Company Number: IT-PFIZER INC-2012264670

PATIENT
  Age: 15 Year
  Sex: Female

DRUGS (1)
  1. ZITROMAX [Suspect]
     Indication: COUGH
     Dosage: 400 mg, 1x/day
     Route: 048
     Dates: start: 20121010, end: 20121012

REACTIONS (5)
  - Diarrhoea haemorrhagic [Recovered/Resolved]
  - Haematochezia [Unknown]
  - Abdominal pain upper [Recovered/Resolved]
  - Musculoskeletal pain [Recovered/Resolved]
  - Nausea [Recovered/Resolved]
